FAERS Safety Report 8932740 (Version 1)
Quarter: 2012Q4

REPORT INFORMATION
  Report Type: 
  Country: US (occurrence: US)
  Receive Date: 20121129
  Receipt Date: 20121129
  Transmission Date: 20130627
  Serious: No
  Sender: FDA-Public Use
  Company Number: US-009507513-1211USA011423

PATIENT
  Sex: Female
  Weight: 84.81 kg

DRUGS (9)
  1. VICTRELIS [Suspect]
     Dosage: 800 mg, tid
     Route: 048
  2. HYDROCHLOROT [Concomitant]
  3. VITAMIN E [Concomitant]
     Dosage: concentration 400 units
  4. ALBUTEROL SULFATE [Concomitant]
     Dosage: Neb 0.5%
  5. NEXIUM [Concomitant]
     Dosage: UNK
  6. IBUPROFEN [Concomitant]
     Dosage: UNK
  7. ASCORBIC ACID [Concomitant]
  8. CALCIUM (UNSPECIFIED) (+) VITAMIN D (UNSPECIFIED) [Concomitant]
  9. ALBUTEROL SULFATE [Concomitant]
     Dosage: AER, RF

REACTIONS (2)
  - Haemoglobin decreased [Unknown]
  - Platelet count decreased [Unknown]
